FAERS Safety Report 9033055 (Version 2)
Quarter: 2013Q1

REPORT INFORMATION
  Report Type: Spontaneous
  Country: GB (occurrence: None)
  Receive Date: 20130109
  Receipt Date: 20130225
  Transmission Date: 20140127
  Serious: Yes (Life-Threatening, Hospitalization)
  Sender: FDA-Public Use
  Company Number: TPA2013A00346

PATIENT
  Age: 67 Year
  Sex: Female

DRUGS (13)
  1. LANSOPRAZOLE (LANSOPRAZOLE) [Suspect]
     Dosage: IN THE MORNING
     Route: 048
  2. CLARITHROMYCIN (CLARITHROMYCIN) [Suspect]
     Dosage: 1000 MG (500 MG, 2 IN 1 D), ORAL
     Route: 048
     Dates: end: 20101102
  3. TRIMETHOPRIM [Suspect]
     Indication: URINARY TRACT INFECTION
     Dosage: 400 MG (200 MG, 2 IN 1 D), ORAL
     Route: 048
     Dates: start: 20110416, end: 20110423
  4. CIPROFLOXACIN (CIPROFLOXACIN) [Suspect]
     Dosage: 1000 MG (500 MG, 2 IN 1D), ORAL
     Route: 048
     Dates: start: 20110401, end: 20110408
  5. DOXYCYCLINE (DOXYCYCLINE) [Suspect]
     Route: 048
     Dates: end: 20110502
  6. BUMETANIDE (BUMETANIDE) [Concomitant]
  7. AMLODIPINE (AMLODIPINE) [Concomitant]
  8. ASPIRIN (ACETYLSALICYLIC ACID) [Concomitant]
  9. ATORVASTATIN (ATORVASTATIN) [Concomitant]
  10. BENDROFLUMETHIAZIDE (BENDROFLUMETHIAZIDE) [Concomitant]
  11. IRBESARTAN (IRBESARTAN) [Concomitant]
  12. PARACETAMOL (PARACETAMOL) [Concomitant]
  13. SALBUTAMOL (SALBUTAMOL) [Concomitant]

REACTIONS (1)
  - Clostridial infection [None]
